FAERS Safety Report 7903557-9 (Version None)
Quarter: 2011Q4

REPORT INFORMATION
  Report Type: 
  Country: None (occurrence: None)
  Receive Date: 20111109
  Receipt Date: 20111109
  Transmission Date: 20120403
  Serious: Yes (Hospitalization)
  Sender: FDA-Public Use
  Company Number: None

PATIENT
  Age: 47 Year
  Sex: Female
  Weight: 97.522 kg

DRUGS (2)
  1. SULFAMETHOXAZOLE AND TRIMETHOPRIM [Suspect]
     Indication: STAPHYLOCOCCAL INFECTION
     Dosage: 1 TABLET
     Route: 048
     Dates: start: 20111024, end: 20111103
  2. SULFAMETHOXAZOLE AND TRIMETHOPRIM [Suspect]
     Indication: ARTHRITIS INFECTIVE
     Dosage: 1 TABLET
     Route: 048
     Dates: start: 20111024, end: 20111103

REACTIONS (7)
  - PYREXIA [None]
  - RASH GENERALISED [None]
  - CHILLS [None]
  - MALAISE [None]
  - PAIN [None]
  - PLATELET COUNT DECREASED [None]
  - WHITE BLOOD CELL COUNT DECREASED [None]
